FAERS Safety Report 8604485-6 (Version None)
Quarter: 2012Q3

REPORT INFORMATION
  Report Type: 
  Country: None (occurrence: None)
  Receive Date: 20120820
  Receipt Date: 20120814
  Transmission Date: 20120928
  Serious: No
  Sender: FDA-Public Use
  Company Number: US-PFIZER INC-2012199697

PATIENT
  Age: 61 Year
  Sex: Female
  Weight: 49.887 kg

DRUGS (2)
  1. NEURONTIN [Suspect]
     Indication: SCIATICA
     Dosage: 100 MG, DAILY
     Route: 048
     Dates: start: 20120628, end: 20120730
  2. DIAZEPAM [Concomitant]
     Indication: ANXIETY
     Dosage: 2.5 MG, 3X/DAY
     Dates: start: 20120101

REACTIONS (13)
  - INSOMNIA [None]
  - HYPOAESTHESIA [None]
  - DEPRESSION [None]
  - ANXIETY [None]
  - ABNORMAL BEHAVIOUR [None]
  - PANIC ATTACK [None]
  - DRY MOUTH [None]
  - MOOD ALTERED [None]
  - PAIN IN EXTREMITY [None]
  - GAIT DISTURBANCE [None]
  - WHITE BLOOD CELL COUNT DECREASED [None]
  - NAUSEA [None]
  - MUSCLE FATIGUE [None]
